FAERS Safety Report 10549005 (Version 1)
Quarter: 2014Q4

REPORT INFORMATION
  Report Type: Spontaneous
  Country: US (occurrence: US)
  Receive Date: 20141028
  Receipt Date: 20141028
  Transmission Date: 20150529
  Serious: Yes (Other)
  Sender: FDA-Public Use
  Company Number: US-TEVA-517312USA

PATIENT
  Age: 16 Year
  Sex: Female

DRUGS (1)
  1. MINOCYCLINE [Suspect]
     Active Substance: MINOCYCLINE\MINOCYCLINE HYDROCHLORIDE
     Indication: ACNE
     Dosage: 200 MILLIGRAM DAILY;
     Route: 048

REACTIONS (5)
  - Arthralgia [Unknown]
  - Lupus-like syndrome [Unknown]
  - Pain [Unknown]
  - Organ failure [Unknown]
  - Hepatitis [Unknown]

NARRATIVE: CASE EVENT DATE: 201109
